FAERS Safety Report 17177196 (Version 4)
Quarter: 2025Q3

REPORT INFORMATION
  Report Type: Spontaneous
  Country: EU (occurrence: EU)
  Receive Date: 20191219
  Receipt Date: 20250906
  Transmission Date: 20251020
  Serious: Yes (Hospitalization, Other)
  Sender: AUROBINDO
  Company Number: EU-KRKA-ES2019K19834LIT

PATIENT
  Age: 49 Year
  Sex: Female

DRUGS (2)
  1. ESCITALOPRAM [Suspect]
     Active Substance: ESCITALOPRAM OXALATE
     Indication: Affective disorder
     Route: 065
  2. AMITRIPTYLINE [Suspect]
     Active Substance: AMITRIPTYLINE
     Indication: Affective disorder
     Route: 065

REACTIONS (4)
  - Colitis microscopic [Recovered/Resolved]
  - Product use in unapproved indication [Unknown]
  - Lymphocytosis [Recovered/Resolved]
  - Diarrhoea [Recovered/Resolved]
